FAERS Safety Report 22266278 (Version 3)
Quarter: 2023Q4

REPORT INFORMATION
  Report Type: Spontaneous
  Country: US (occurrence: US)
  Receive Date: 20230428
  Receipt Date: 20231103
  Transmission Date: 20240110
  Serious: No
  Sender: FDA-Public Use
  Company Number: US-MYOVANT SCIENCES GMBH-2023MYSCI0200590

PATIENT
  Age: 77 Year
  Sex: Male

DRUGS (2)
  1. ORGOVYX [Suspect]
     Active Substance: RELUGOLIX
     Indication: Prostate cancer
     Dosage: 120 MILLIGRAM, QD
     Route: 048
     Dates: start: 20230209
  2. ORGOVYX [Suspect]
     Active Substance: RELUGOLIX
     Dosage: 120 MILLIGRAM, QD
     Route: 048

REACTIONS (14)
  - Memory impairment [Not Recovered/Not Resolved]
  - Somnolence [Unknown]
  - Dizziness [Unknown]
  - Withdrawal syndrome [Unknown]
  - Hyperhidrosis [Not Recovered/Not Resolved]
  - Hot flush [Not Recovered/Not Resolved]
  - Gynaecomastia [Unknown]
  - Constipation [Unknown]
  - Arthralgia [Unknown]
  - Fatigue [Unknown]
  - Cough [Unknown]
  - Pulmonary congestion [Unknown]
  - Product dose omission issue [Recovered/Resolved]
  - Incorrect dose administered [Recovered/Resolved]

NARRATIVE: CASE EVENT DATE: 20230201
